APPROVED DRUG PRODUCT: METHYLDOPA AND HYDROCHLOROTHIAZIDE
Active Ingredient: HYDROCHLOROTHIAZIDE; METHYLDOPA
Strength: 50MG;500MG
Dosage Form/Route: TABLET;ORAL
Application: A071923 | Product #001
Applicant: WATSON LABORATORIES INC
Approved: Aug 29, 1988 | RLD: No | RS: No | Type: DISCN